FAERS Safety Report 8767115 (Version 1)
Quarter: 2012Q4

REPORT INFORMATION
  Report Type: 
  Country: US (occurrence: US)
  Receive Date: 20120904
  Receipt Date: 20120904
  Transmission Date: 20130627
  Serious: No
  Sender: FDA-Public Use
  Company Number: US-PFIZER INC-2012211844

PATIENT
  Age: 70 Year
  Sex: Female
  Weight: 68.03 kg

DRUGS (9)
  1. SUTENT [Suspect]
     Indication: METASTATIC RENAL CELL CARCINOMA
     Dosage: 50 mg, 42-day cycle
     Dates: start: 20120820
  2. ANASTROZOLE [Concomitant]
     Indication: BREAST CANCER
     Dosage: 5 mg, 1x/day
  3. DILTIAZEM [Concomitant]
  4. QUINAPRIL [Concomitant]
  5. GEMFIBROZIL [Concomitant]
  6. ATENOLOL [Concomitant]
  7. PLAVIX [Concomitant]
  8. LANTUS [Concomitant]
     Dosage: 1x/day, at bedtime
  9. METFORMIN [Concomitant]
     Dosage: 1x/day, at bedtime

REACTIONS (3)
  - Renal pain [Unknown]
  - Pain [Unknown]
  - Weight increased [Unknown]
